FAERS Safety Report 17560084 (Version 2)
Quarter: 2020Q1

REPORT INFORMATION
  Report Type: Spontaneous
  Country: US (occurrence: US)
  Receive Date: 20200319
  Receipt Date: 20200326
  Transmission Date: 20200409
  Serious: No
  Sender: FDA-Public Use
  Company Number: US-PFIZER INC-2019017724

PATIENT
  Age: 64 Year
  Sex: Male
  Weight: 106.58 kg

DRUGS (3)
  1. RAPAMUNE [Suspect]
     Active Substance: SIROLIMUS
     Dosage: 4 MG, UNK (ON MONDAY, WEDNESDAY AND FRIDAY)
     Route: 048
  2. RAPAMUNE [Suspect]
     Active Substance: SIROLIMUS
     Dosage: 1 MG, UNK
  3. RAPAMUNE [Suspect]
     Active Substance: SIROLIMUS
     Dosage: 5 MG, UNK (ALL OTHER DAYS)
     Route: 048

REACTIONS (4)
  - Visual impairment [Unknown]
  - Off label use [Unknown]
  - Product use issue [Unknown]
  - Intentional product misuse [Unknown]
